FAERS Safety Report 6592545-3 (Version None)
Quarter: 2010Q1

REPORT INFORMATION
  Report Type: 
  Country: None (occurrence: None)
  Receive Date: 20100221
  Receipt Date: 20091201
  Transmission Date: 20100710
  Serious: No
  Sender: FDA-Public Use
  Company Number: US-ALLERGAN-0914675US

PATIENT
  Age: 44 Year
  Sex: Female

DRUGS (8)
  1. BOTOX COSMETIC [Suspect]
     Indication: SKIN WRINKLING
     Dosage: 19 UNITS, SINGLE
     Route: 030
     Dates: start: 20091013, end: 20091013
  2. BOTOX COSMETIC [Suspect]
     Dosage: 19 UNITS, SINGLE
     Route: 030
     Dates: start: 20091013, end: 20091013
  3. BOTOX COSMETIC [Suspect]
     Dosage: 20 UNITS, SINGLE
     Route: 030
     Dates: start: 20090619, end: 20090619
  4. BOTOX COSMETIC [Suspect]
     Dosage: 27 UNITS, SINGLE
     Route: 030
     Dates: start: 20080624, end: 20080624
  5. BOTOX COSMETIC [Suspect]
     Dosage: UNK
     Route: 030
     Dates: start: 20070822, end: 20070822
  6. SYNTHROID [Concomitant]
     Indication: AUTOIMMUNE THYROIDITIS
     Dosage: UNK
  7. SYNTHROID [Concomitant]
     Indication: HYPOTHYROIDISM
  8. RADIESSE [Concomitant]
     Dosage: 1.1 ML, SINGLE
     Dates: start: 20090813, end: 20090813

REACTIONS (3)
  - ASTHENIA [None]
  - ERYTHEMA [None]
  - FACIAL PAIN [None]
